FAERS Safety Report 12434744 (Version 5)
Quarter: 2017Q1

REPORT INFORMATION
  Report Type: Report from Study
  Country: CA (occurrence: CA)
  Receive Date: 20160603
  Receipt Date: 20170123
  Transmission Date: 20170428
  Serious: Yes (Hospitalization, Other)
  Sender: FDA-Public Use
  Company Number: PHHY2009CA10307

PATIENT
  Age: 52 Year
  Sex: Female
  Weight: 88.1 kg

DRUGS (26)
  1. XOLAIR [Suspect]
     Active Substance: OMALIZUMAB
     Dosage: UNK
     Route: 058
     Dates: start: 20141201
  2. XOLAIR [Suspect]
     Active Substance: OMALIZUMAB
     Dosage: UNK
     Route: 058
     Dates: start: 20160705
  3. SINGULAIR [Concomitant]
     Active Substance: MONTELUKAST SODIUM
     Indication: PRODUCT USED FOR UNKNOWN INDICATION
     Dosage: UNK
     Route: 065
  4. XOLAIR [Suspect]
     Active Substance: OMALIZUMAB
     Dosage: 300 MG, EVERY 3 WEEKS
     Route: 058
     Dates: start: 20130827
  5. XOLAIR [Suspect]
     Active Substance: OMALIZUMAB
     Dosage: UNK
     Route: 058
     Dates: start: 20160930
  6. XOLAIR [Suspect]
     Active Substance: OMALIZUMAB
     Dosage: UNK
     Route: 058
     Dates: start: 20161221
  7. XOLAIR [Suspect]
     Active Substance: OMALIZUMAB
     Dosage: 300 MG, BIW
     Route: 058
     Dates: start: 20091001
  8. PREDNISONE. [Suspect]
     Active Substance: PREDNISONE
     Indication: ASTHMA
  9. XOLAIR [Suspect]
     Active Substance: OMALIZUMAB
     Dosage: 300 MG, BIW
     Route: 058
     Dates: start: 20091202
  10. XOLAIR [Suspect]
     Active Substance: OMALIZUMAB
     Dosage: UNK
     Route: 058
     Dates: start: 20160301
  11. XOLAIR [Suspect]
     Active Substance: OMALIZUMAB
     Dosage: 300 MG, EVERY 3 WEEKS
     Route: 058
     Dates: start: 20090420
  12. XOLAIR [Suspect]
     Active Substance: OMALIZUMAB
     Dosage: UNK
     Route: 058
     Dates: start: 20150112
  13. NASONEX [Concomitant]
     Active Substance: MOMETASONE FUROATE
     Indication: PRODUCT USED FOR UNKNOWN INDICATION
     Dosage: UNK
     Route: 065
  14. XOLAIR [Suspect]
     Active Substance: OMALIZUMAB
     Indication: ASTHMA
     Dosage: 375 MG, BIW
     Route: 058
     Dates: start: 20080402
  15. XOLAIR [Suspect]
     Active Substance: OMALIZUMAB
     Dosage: 300 MG, BIW
     Route: 058
     Dates: start: 20091230
  16. XOLAIR [Suspect]
     Active Substance: OMALIZUMAB
     Dosage: UNK
     Route: 058
     Dates: start: 20140909
  17. XOLAIR [Suspect]
     Active Substance: OMALIZUMAB
     Dosage: UNK
     Route: 058
     Dates: start: 20160412
  18. PREDNISONE. [Suspect]
     Active Substance: PREDNISONE
     Indication: CHEST PAIN
     Dosage: 15 DAY COURSE
     Route: 042
  19. SYMBICORT [Concomitant]
     Active Substance: BUDESONIDE\FORMOTEROL FUMARATE DIHYDRATE
     Indication: PRODUCT USED FOR UNKNOWN INDICATION
     Dosage: UNK
     Route: 065
  20. VENTOLIN [Concomitant]
     Active Substance: ALBUTEROL SULFATE
     Indication: PRODUCT USED FOR UNKNOWN INDICATION
     Dosage: UNK
     Route: 065
  21. XOLAIR [Suspect]
     Active Substance: OMALIZUMAB
     Dosage: 300 MG, BIW
     Route: 058
     Dates: start: 20100113
  22. XOLAIR [Suspect]
     Active Substance: OMALIZUMAB
     Dosage: UNK
     Route: 058
     Dates: start: 20160502
  23. XOLAIR [Suspect]
     Active Substance: OMALIZUMAB
     Dosage: 300 MG, EVERY 4 WEEKS
     Route: 058
  24. INFLUENZA VIRUS VACCINE - UNKNOWN INN [Suspect]
     Active Substance: INFLUENZA VIRUS VACCINE
     Indication: IMMUNISATION
     Dosage: 1 DF
     Route: 065
     Dates: start: 20131120, end: 20131120
  25. PREDNISONE. [Suspect]
     Active Substance: PREDNISONE
     Indication: PRODUCTIVE COUGH
  26. PREDNISONE. [Suspect]
     Active Substance: PREDNISONE
     Indication: BRONCHITIS

REACTIONS (54)
  - Lymphadenopathy [Unknown]
  - Chills [Unknown]
  - Increased viscosity of bronchial secretion [Unknown]
  - Musculoskeletal chest pain [Unknown]
  - Immune system disorder [Unknown]
  - Anaemia [Unknown]
  - Sinus congestion [Unknown]
  - Sinus pain [Unknown]
  - Influenza like illness [Unknown]
  - Nasal congestion [Recovering/Resolving]
  - Chest pain [Unknown]
  - Pain in extremity [Unknown]
  - Burning sensation [Unknown]
  - Arthralgia [Unknown]
  - Pruritus [Unknown]
  - Nausea [Unknown]
  - Pneumonia [Recovering/Resolving]
  - Insomnia [Unknown]
  - Weight increased [Unknown]
  - Musculoskeletal discomfort [Unknown]
  - Decreased appetite [Unknown]
  - Respiratory tract congestion [Unknown]
  - Lung infection [Unknown]
  - Dyspnoea [Unknown]
  - Asthenia [Unknown]
  - Cough [Recovering/Resolving]
  - Productive cough [Unknown]
  - Hypertension [Unknown]
  - Bronchitis [Not Recovered/Not Resolved]
  - Tremor [Unknown]
  - Malaise [Unknown]
  - Blood pressure decreased [Unknown]
  - Sputum discoloured [Unknown]
  - Erythema [Unknown]
  - Headache [Unknown]
  - Oropharyngeal pain [Recovering/Resolving]
  - Influenza [Unknown]
  - Inflammation [Unknown]
  - Fatigue [Unknown]
  - Dizziness [Unknown]
  - Pyrexia [Recovered/Resolved]
  - Weight decreased [Unknown]
  - Facial pain [Unknown]
  - Nasopharyngitis [Recovering/Resolving]
  - Rhinorrhoea [Unknown]
  - Myalgia [Unknown]
  - Hypersensitivity [Unknown]
  - Asthma [Unknown]
  - Rales [Unknown]
  - Heart rate increased [Recovered/Resolved]
  - Arthritis [Unknown]
  - Sinusitis [Recovering/Resolving]
  - Upper-airway cough syndrome [Unknown]
  - Pain [Unknown]

NARRATIVE: CASE EVENT DATE: 20120212
